FAERS Safety Report 4427393-3 (Version None)
Quarter: 2004Q3

REPORT INFORMATION
  Report Type: 
  Country: None (occurrence: None)
  Receive Date: 20040812
  Receipt Date: 20040730
  Transmission Date: 20050211
  Serious: Yes (Other)
  Sender: FDA-Public Use
  Company Number: 2004024794

PATIENT
  Age: 74 Year
  Sex: Male
  Weight: 77 kg

DRUGS (5)
  1. QUINAPRIL HCL [Suspect]
     Indication: HYPERTENSION
     Dosage: 40 MG (2 IN 1 D), ORAL
     Route: 048
     Dates: start: 20010828
  2. ASPIRIN [Concomitant]
  3. ATORVASTATIN (ATORVASTATIN) [Concomitant]
  4. METOPROLOL TARTRATE [Concomitant]
  5. FELODIPINE [Concomitant]

REACTIONS (1)
  - PROSTATE CANCER [None]
